FAERS Safety Report 7133245-0 (Version None)
Quarter: 2010Q4

REPORT INFORMATION
  Report Type: 
  Country: None (occurrence: None)
  Receive Date: 20101202
  Receipt Date: 20101126
  Transmission Date: 20110411
  Serious: Yes (Death, Hospitalization, Other)
  Sender: FDA-Public Use
  Company Number: US-AMGEN-KDL435859

PATIENT

DRUGS (4)
  1. NEULASTA [Suspect]
     Indication: CHEMOTHERAPY
     Dosage: 6 MG, Q2WK
     Route: 058
     Dates: start: 20081229, end: 20090327
  2. DOXORUBICIN HCL [Concomitant]
     Dosage: 104 MG, QCYCLE
     Route: 040
     Dates: start: 20081229, end: 20090212
  3. CYCLOPHOSPHAMIDE [Concomitant]
     Dosage: 1040 MG, QCYCLE
     Route: 040
     Dates: start: 20081229, end: 20090212
  4. PACLITAXEL [Concomitant]
     Dosage: 294 MG, QCYCLE
     Route: 040

REACTIONS (2)
  - ACUTE MYELOID LEUKAEMIA [None]
  - DEATH [None]
